FAERS Safety Report 4581138-5 (Version None)
Quarter: 2005Q1

REPORT INFORMATION
  Report Type: 
  Country: None (occurrence: None)
  Receive Date: 20050214
  Receipt Date: 20040812
  Transmission Date: 20050727
  Serious: No
  Sender: FDA-Public Use
  Company Number: US-GLAXOSMITHKLINE-A0521985A

PATIENT
  Age: 82 Year
  Sex: Male

DRUGS (3)
  1. LAMICTAL [Suspect]
     Dosage: 150MG PER DAY
     Route: 048
     Dates: start: 20040101
  2. MULTIVITAMIN [Concomitant]
  3. UROXATRAL [Concomitant]

REACTIONS (1)
  - NAUSEA [None]
